FAERS Safety Report 6193386-1 (Version None)
Quarter: 2009Q2

REPORT INFORMATION
  Report Type: 
  Country: None (occurrence: None)
  Receive Date: 20090514
  Receipt Date: 20090514
  Transmission Date: 20091009
  Serious: No
  Sender: FDA-Public Use
  Company Number: None

PATIENT
  Age: 55 Year
  Sex: Male
  Weight: 81.6475 kg

DRUGS (4)
  1. SEROQUEL [Suspect]
     Indication: DEPRESSION
     Dates: start: 20081218, end: 20090514
  2. SEROQUEL [Suspect]
     Indication: SLEEP DISORDER
     Dates: start: 20081218, end: 20090514
  3. SEROQUEL [Suspect]
     Indication: DEPRESSION
     Dates: start: 20081218, end: 20090514
  4. SEROQUEL [Suspect]
     Indication: SLEEP DISORDER
     Dates: start: 20081218, end: 20090514

REACTIONS (1)
  - HEART RATE IRREGULAR [None]
